FAERS Safety Report 14151517 (Version 1)
Quarter: 2017Q4

REPORT INFORMATION
  Report Type: Spontaneous
  Country: US (occurrence: None)
  Receive Date: 20171101
  Receipt Date: 20171101
  Transmission Date: 20180321
  Serious: Yes (Hospitalization)
  Sender: FDA-Public Use
  Company Number: None

PATIENT
  Age: 55 Year
  Sex: Male

DRUGS (1)
  1. TACROLIMUS. [Suspect]
     Active Substance: TACROLIMUS
     Indication: TRANSPLANT
     Dates: start: 20170811, end: 20170811

REACTIONS (4)
  - Complication associated with device [None]
  - Anaemia of chronic disease [None]
  - Haemolytic anaemia [None]
  - Portal vein flow decreased [None]

NARRATIVE: CASE EVENT DATE: 20170811
